FAERS Safety Report 12959297 (Version 1)
Quarter: 2016Q4

REPORT INFORMATION
  Report Type: Spontaneous
  Country: US (occurrence: US)
  Receive Date: 20161121
  Receipt Date: 20161121
  Transmission Date: 20170207
  Serious: No
  Sender: FDA-Public Use
  Company Number: US-TEVA-693215USA

PATIENT
  Sex: Male
  Weight: 127.12 kg

DRUGS (1)
  1. HYDROMORPHONE [Suspect]
     Active Substance: HYDROMORPHONE
     Indication: BACK PAIN
     Route: 065

REACTIONS (5)
  - Nausea [Unknown]
  - Product measured potency issue [Unknown]
  - Dizziness [Unknown]
  - Drug dose omission [Unknown]
  - Fatigue [Unknown]
